FAERS Safety Report 11026025 (Version 4)
Quarter: 2015Q3

REPORT INFORMATION
  Report Type: Spontaneous
  Country: US (occurrence: US)
  Receive Date: 20150414
  Receipt Date: 20150727
  Transmission Date: 20151125
  Serious: Yes (Hospitalization, Other)
  Sender: FDA-Public Use
  Company Number: US-PFIZER INC-2015123348

PATIENT
  Age: 82 Year
  Sex: Female
  Weight: 68.27 kg

DRUGS (13)
  1. REVATIO [Suspect]
     Active Substance: SILDENAFIL CITRATE
     Indication: PULMONARY HYPERTENSION
     Dosage: 20 MG, 3X/DAY
     Route: 048
     Dates: start: 200801
  2. SPIRONOLACTONE. [Concomitant]
     Active Substance: SPIRONOLACTONE
     Dosage: UNK
     Dates: start: 200803
  3. ACIDOPHILUS [Concomitant]
     Active Substance: LACTOBACILLUS ACIDOPHILUS
     Dosage: UNK
     Dates: start: 200803
  4. SPIRIVA [Concomitant]
     Active Substance: TIOTROPIUM BROMIDE MONOHYDRATE
     Indication: LUNG DISORDER
     Dosage: 36 ?G, 2X/DAY (18 MCG, TWO PUFF, TWO TIMES A DAY)
     Dates: start: 2008
  5. ASPIRIN BAYER [Concomitant]
     Active Substance: ASPIRIN
     Dosage: 81 MG, UNK
     Dates: start: 2002
  6. LIPITOR [Concomitant]
     Active Substance: ATORVASTATIN CALCIUM
     Dosage: 1 DF, 1X/DAY
     Dates: start: 2000
  7. CARDIZEM [Concomitant]
     Active Substance: DILTIAZEM HYDROCHLORIDE
     Dosage: 240 MG, 2X/DAY
     Dates: start: 201503
  8. VITAMIN C [Concomitant]
     Active Substance: ASCORBIC ACID
     Dosage: UNK
     Dates: start: 200803
  9. CENTRUM SILVER /02363801/ [Concomitant]
     Active Substance: VITAMINS
     Dosage: UNK
     Dates: start: 200803
  10. TORSEMIDE. [Concomitant]
     Active Substance: TORSEMIDE
     Indication: DIURETIC THERAPY
     Dosage: 20 MG, 2X/DAY
     Route: 048
  11. PLAVIX [Concomitant]
     Active Substance: CLOPIDOGREL BISULFATE
     Indication: CARDIAC DISORDER
     Dosage: 75 MG, 1X/DAY
     Route: 048
     Dates: start: 201503
  12. OXYGEN. [Concomitant]
     Active Substance: OXYGEN
     Dosage: PART TIME 2002, FULL TIME 2008
     Dates: start: 2002
  13. ALBUTEROL. [Concomitant]
     Active Substance: ALBUTEROL
     Dosage: 3 ML, 2X/DAY
     Dates: start: 2008

REACTIONS (10)
  - Renal disorder [Recovered/Resolved]
  - Glomerular filtration rate decreased [Unknown]
  - Kidney infection [Recovered/Resolved]
  - Mean cell haemoglobin concentration decreased [Unknown]
  - Blood chloride increased [Unknown]
  - Pain [Unknown]
  - Haemoglobin decreased [Unknown]
  - Blood creatinine increased [Unknown]
  - Blood urea increased [Unknown]
  - Red cell distribution width increased [Unknown]

NARRATIVE: CASE EVENT DATE: 201411
